FAERS Safety Report 5973628-5 (Version None)
Quarter: 2008Q4

REPORT INFORMATION
  Report Type: 
  Country: None (occurrence: None)
  Receive Date: 20081201
  Receipt Date: 20081124
  Transmission Date: 20090506
  Serious: Yes (Hospitalization)
  Sender: FDA-Public Use
  Company Number: DE-ABBOTT-08P-062-0488336-00

PATIENT
  Sex: Male

DRUGS (6)
  1. HUMIRA [Suspect]
     Indication: PSORIATIC ARTHROPATHY
     Dates: start: 20080303, end: 20080601
  2. HUMIRA [Suspect]
     Dates: start: 20080805
  3. METHOTREXATE [Concomitant]
     Indication: PSORIATIC ARTHROPATHY
  4. CYCLOSPORINE [Concomitant]
     Indication: PSORIATIC ARTHROPATHY
  5. ETANERCEPT [Concomitant]
     Indication: PSORIATIC ARTHROPATHY
  6. FUMARSAURE [Concomitant]
     Indication: PSORIATIC ARTHROPATHY

REACTIONS (2)
  - DYSPHAGIA [None]
  - OESOPHAGEAL CARCINOMA [None]
